FAERS Safety Report 5336786-1 (Version None)
Quarter: 2007Q2

REPORT INFORMATION
  Report Type: 
  Country: None (occurrence: None)
  Receive Date: 20070524
  Receipt Date: 20070524
  Transmission Date: 20071010
  Serious: Yes (Hospitalization, Other)
  Sender: FDA-Public Use
  Company Number: None

PATIENT
  Age: 21 Year
  Sex: Female
  Weight: 54.4316 kg

DRUGS (2)
  1. ZONISAMIDE [Suspect]
     Dosage: 1 IN MORNNING 2 IN EVENING 3 DAILY PO
     Route: 048
     Dates: start: 20051103, end: 20051107
  2. ZONISAMIDE [Suspect]
     Dosage: 1 IN MORNNING 2 IN EVENING 3 DAILY PO
     Route: 048
     Dates: start: 20060615, end: 20060620

REACTIONS (5)
  - CONVULSION [None]
  - DRUG EXPOSURE DURING PREGNANCY [None]
  - DRUG INTERACTION [None]
  - POSTPARTUM DEPRESSION [None]
  - PSYCHOTIC DISORDER [None]
